FAERS Safety Report 21416950 (Version 1)
Quarter: 2022Q4

REPORT INFORMATION
  Report Type: Spontaneous
  Country: FR (occurrence: FR)
  Receive Date: 20221006
  Receipt Date: 20221006
  Transmission Date: 20230112
  Serious: Yes (Hospitalization)
  Sender: FDA-Public Use
  Company Number: None

PATIENT
  Age: 51 Year
  Sex: Male
  Weight: 83.5 kg

DRUGS (6)
  1. DIAZEPAM [Interacting]
     Active Substance: DIAZEPAM
     Indication: Psychotic disorder
     Dosage: 2 CP DE 10MG, SOIT 20MG, A 8H. 1 CP DE 10MG A 12H. 1 CP DE 10MG A 18H
     Route: 050
  2. TROPATEPINE HYDROCHLORIDE [Interacting]
     Active Substance: TROPATEPINE HYDROCHLORIDE
     Indication: Product used for unknown indication
     Dosage: 1 CP DE 10MG A 8H ET A 18H.
     Route: 050
  3. LOXAPINE [Interacting]
     Active Substance: LOXAPINE
     Indication: Psychotic disorder
     Dosage: 25MG, SOIT 25 GOUTTES, PAR JOUR. +25MG SB. +30MG AU COUCHER SB.
     Route: 050
  4. CYAMEMAZINE [Interacting]
     Active Substance: CYAMEMAZINE
     Indication: Psychotic disorder
     Dosage: 120MG LE MATIN (=120 GOUTTES). 120MG LE MIDI. 120MG LE SOIR. + 50MG SB.
     Route: 050
  5. OLANZAPINE [Interacting]
     Active Substance: OLANZAPINE
     Indication: Product used for unknown indication
     Dosage: 1 CP DE 10MG A 18H.
     Route: 050
  6. TRIMEPRAZINE [Interacting]
     Active Substance: TRIMEPRAZINE
     Indication: Product used for unknown indication
     Dosage: 20MG, SOIT 4CP, A 22H.
     Route: 050

REACTIONS (3)
  - Somnolence [Recovered/Resolved]
  - Altered state of consciousness [Recovered/Resolved]
  - Dyspnoea [Recovered/Resolved]

NARRATIVE: CASE EVENT DATE: 20220904
